FAERS Safety Report 18384623 (Version 3)
Quarter: 2021Q2

REPORT INFORMATION
  Report Type: Spontaneous
  Country: SI (occurrence: SI)
  Receive Date: 20201015
  Receipt Date: 20210605
  Transmission Date: 20210717
  Serious: Yes (Other)
  Sender: FDA-Public Use
  Company Number: NVSC2020SI274197

PATIENT
  Sex: Female

DRUGS (18)
  1. ZOLEDRONIC ACID. [Suspect]
     Active Substance: ZOLEDRONIC ACID
     Indication: BREAST CANCER METASTATIC
     Dosage: UNK
     Route: 065
     Dates: start: 201803
  2. TAMOXIFEN [Concomitant]
     Active Substance: TAMOXIFEN
     Indication: PRODUCT USED FOR UNKNOWN INDICATION
     Dosage: UNK
     Route: 065
     Dates: start: 201706
  3. GLUCOPHAGE [Concomitant]
     Active Substance: METFORMIN HYDROCHLORIDE
     Dosage: 500 MG, BID (2 X IN THE EVENING)
     Route: 065
     Dates: start: 20210330
  4. CALCIUM CARBONATE. [Concomitant]
     Active Substance: CALCIUM CARBONATE
     Indication: PRODUCT USED FOR UNKNOWN INDICATION
     Dosage: 1 G
     Route: 065
  5. PALBOCICLIB [Concomitant]
     Active Substance: PALBOCICLIB
     Indication: PRODUCT USED FOR UNKNOWN INDICATION
     Dosage: UNK
     Route: 065
     Dates: start: 201803
  6. CAPECITABINE. [Suspect]
     Active Substance: CAPECITABINE
     Indication: BREAST CANCER METASTATIC
     Dosage: UNK
     Route: 065
  7. FULVESTRANT. [Suspect]
     Active Substance: FULVESTRANT
     Indication: BREAST CANCER METASTATIC
     Dosage: UNK
     Route: 065
     Dates: start: 201803
  8. CYCLOPHOSPHAMIDE. [Concomitant]
     Active Substance: CYCLOPHOSPHAMIDE
     Indication: PRODUCT USED FOR UNKNOWN INDICATION
     Dosage: Q 3W FOR 6 CYCLES
     Route: 065
     Dates: start: 202102
  9. METFORMIN [Concomitant]
     Active Substance: METFORMIN HYDROCHLORIDE
     Indication: PRODUCT USED FOR UNKNOWN INDICATION
     Dosage: 500 MG AFTER 6 WEEKS OF FULVESTRANT + ALPELISIB
     Route: 065
  10. ZOLEDRONIC ACID. [Suspect]
     Active Substance: ZOLEDRONIC ACID
     Dosage: Q 3W
     Route: 065
     Dates: start: 202102
  11. GOSERELIN [Concomitant]
     Active Substance: GOSERELIN
     Dosage: UNK
     Route: 065
     Dates: start: 201803
  12. GLUCOPHAGE [Concomitant]
     Active Substance: METFORMIN HYDROCHLORIDE
     Indication: PRODUCT USED FOR UNKNOWN INDICATION
     Dosage: 500 MG, QD (1 X IN THE EVENING)
     Route: 065
     Dates: start: 20210319, end: 20210330
  13. LETROZOL [Suspect]
     Active Substance: LETROZOLE
     Indication: BREAST CANCER METASTATIC
     Dosage: UNK
     Route: 065
  14. DOXORUBICIN [Suspect]
     Active Substance: DOXORUBICIN
     Indication: BREAST CANCER METASTATIC
     Dosage: Q 3W FOR 6 CYCLES
     Route: 065
     Dates: start: 202102
  15. FULVESTRANT. [Suspect]
     Active Substance: FULVESTRANT
     Dosage: 500 MG, Q4W
     Route: 030
     Dates: start: 20201012
  16. GOSERELIN [Concomitant]
     Active Substance: GOSERELIN
     Indication: PRODUCT USED FOR UNKNOWN INDICATION
     Dosage: UNK
     Route: 065
     Dates: start: 201706
  17. FULVESTRANT. [Suspect]
     Active Substance: FULVESTRANT
     Dosage: UNK
     Route: 065
     Dates: start: 202010, end: 202103
  18. PLIVIT D3 [Concomitant]
     Active Substance: CHOLECALCIFEROL
     Indication: PRODUCT USED FOR UNKNOWN INDICATION
     Dosage: 50 DRP/GTT, QW
     Route: 065

REACTIONS (8)
  - Metastases to bone [Unknown]
  - Rash [Recovered/Resolved]
  - Metastases to liver [Recovered/Resolved]
  - Jaw disorder [Recovered/Resolved]
  - Osteonecrosis of jaw [Recovered/Resolved]
  - Breast cancer metastatic [Recovered/Resolved]
  - Glycosylated haemoglobin increased [Recovered/Resolved]
  - Malignant neoplasm progression [Recovered/Resolved]

NARRATIVE: CASE EVENT DATE: 201901
